FAERS Safety Report 21311269 (Version 1)
Quarter: 2022Q3

REPORT INFORMATION
  Report Type: Spontaneous
  Country: US (occurrence: None)
  Receive Date: 20220909
  Receipt Date: 20220909
  Transmission Date: 20221027
  Serious: No
  Sender: FDA-Public Use
  Company Number: US-ARIS GLOBAL-202202-0322

PATIENT
  Age: 81 Year
  Sex: Female

DRUGS (10)
  1. OXERVATE [Suspect]
     Active Substance: CENEGERMIN-BKBJ
     Indication: Neurotrophic keratopathy
     Route: 047
     Dates: start: 20220218
  2. OXERVATE [Suspect]
     Active Substance: CENEGERMIN-BKBJ
     Indication: Ulcerative keratitis
  3. SPIRONOLACTONE [Concomitant]
     Active Substance: SPIRONOLACTONE
  4. SIMVASTATIN [Concomitant]
     Active Substance: SIMVASTATIN
  5. AMLODIPINE BESYLATE [Concomitant]
     Active Substance: AMLODIPINE BESYLATE
  6. FLUOROMETHOLONE [Concomitant]
     Active Substance: FLUOROMETHOLONE
  7. REFRESH CELLUVISC [Concomitant]
     Active Substance: CARBOXYMETHYLCELLULOSE SODIUM
  8. VALACYCLOVIR [Concomitant]
     Active Substance: VALACYCLOVIR HYDROCHLORIDE
  9. OFLOXACIN [Concomitant]
     Active Substance: OFLOXACIN
  10. TIMOLOL MALEATE [Concomitant]
     Active Substance: TIMOLOL MALEATE

REACTIONS (5)
  - Eye pain [Not Recovered/Not Resolved]
  - Eye swelling [Unknown]
  - Intraocular pressure increased [Unknown]
  - Photophobia [Unknown]
  - Eye irritation [Unknown]

NARRATIVE: CASE EVENT DATE: 20220218
